FAERS Safety Report 6756961-9 (Version None)
Quarter: 2010Q2

REPORT INFORMATION
  Report Type: 
  Country: None (occurrence: None)
  Receive Date: 20100603
  Receipt Date: 20100603
  Transmission Date: 20101027
  Serious: Yes (Hospitalization)
  Sender: FDA-Public Use
  Company Number: None

PATIENT
  Age: 63 Year
  Sex: Male

DRUGS (2)
  1. LISINOPRIL [Suspect]
     Indication: HYPERTENSION
     Dosage: 40 MG BID PO
     Route: 048
     Dates: start: 20020306, end: 20100528
  2. CELECOXIB [Suspect]
     Indication: PAIN
     Dosage: 200 MG PRN PO
     Route: 048
     Dates: start: 20100524, end: 20100528

REACTIONS (1)
  - ANGIOEDEMA [None]
